FAERS Safety Report 6706106-6 (Version None)
Quarter: 2010Q2

REPORT INFORMATION
  Report Type: 
  Country: None (occurrence: None)
  Receive Date: 20100503
  Receipt Date: 20100422
  Transmission Date: 20101027
  Serious: Yes (Other)
  Sender: FDA-Public Use
  Company Number: JP-PFIZER INC-2010052691

PATIENT
  Age: 74 Year
  Sex: Male

DRUGS (2)
  1. UNASYN [Suspect]
     Indication: PNEUMONIA ASPIRATION
     Dosage: 3 G, 2X/DAY
     Route: 042
     Dates: start: 20100418
  2. WARFARIN [Concomitant]
     Route: 048

REACTIONS (1)
  - PROTHROMBIN TIME PROLONGED [None]
